FAERS Safety Report 19480756 (Version 1)
Quarter: 2021Q2

REPORT INFORMATION
  Report Type: Spontaneous
  Country: CA (occurrence: CA)
  Receive Date: 20210630
  Receipt Date: 20210630
  Transmission Date: 20210717
  Serious: Yes (Hospitalization, Other)
  Sender: FDA-Public Use
  Company Number: CA-B.I. PHARMACEUTICALS,INC./RIDGEFIELD-2021-BI-112612

PATIENT
  Age: 56 Year
  Sex: Female
  Weight: 80 kg

DRUGS (21)
  1. VALSARTAN. [Concomitant]
     Active Substance: VALSARTAN
     Indication: PRODUCT USED FOR UNKNOWN INDICATION
     Route: 048
  2. SALBUTAMOL SULFATE [Suspect]
     Active Substance: ALBUTEROL SULFATE
     Indication: ASTHMA
  3. PANTOPRAZOLE SODIUM ANHYDROUS [Concomitant]
     Active Substance: PANTOPRAZOLE SODIUM ANHYDROUS
     Indication: PRODUCT USED FOR UNKNOWN INDICATION
     Dosage: 80 MILLIGRAM/DAY PO
     Route: 048
  4. ALVESCO [Suspect]
     Active Substance: CICLESONIDE
     Indication: PRODUCT USED FOR UNKNOWN INDICATION
     Dosage: 8 DOSAGE FORM
     Route: 055
  5. SYMBICORT [Suspect]
     Active Substance: BUDESONIDE\FORMOTEROL FUMARATE DIHYDRATE
     Dosage: 2 DF, FREQUENCY  TWO TIMES   A   DAY UNKNOWN
     Route: 055
  6. FLOVENT [Suspect]
     Active Substance: FLUTICASONE PROPIONATE
     Indication: ASTHMA
     Dosage: 4  DOSAGE FORM
  7. PREDNISONE. [Suspect]
     Active Substance: PREDNISONE
     Indication: PRODUCT USED FOR UNKNOWN INDICATION
     Dosage: 100 MILLIGRAM
     Route: 048
  8. AVAMYS [Suspect]
     Active Substance: FLUTICASONE FUROATE
     Indication: ASTHMA
     Dosage: METERED DOSE
  9. DULOXETINE HYDROCHLORIDE. [Concomitant]
     Active Substance: DULOXETINE HYDROCHLORIDE
     Indication: DEPRESSION
     Dosage: 60 MILLIGRAM/DAY PO
     Route: 048
  10. ESOMEPRAZOLE MAGNESIUM TRIHYDRATE [Concomitant]
     Active Substance: ESOMEPRAZOLE MAGNESIUM
     Indication: GASTROOESOPHAGEAL REFLUX DISEASE
  11. THEOPHYLLINE [Suspect]
     Active Substance: THEOPHYLLINE ANHYDROUS
     Indication: PRODUCT USED FOR UNKNOWN INDICATION
     Dosage: 600 MILLIGRAM
  12. ADVAIR HFA [Suspect]
     Active Substance: FLUTICASONE PROPIONATE\SALMETEROL XINAFOATE
     Indication: ASTHMA
     Dosage: 3   DOSAGE FORM
  13. GLYCOPYRRONIUM BROMIDE [Suspect]
     Active Substance: GLYCOPYRROLATE
     Indication: PRODUCT USED FOR UNKNOWN INDICATION
     Dosage: 50 MICROGRAM
     Route: 055
  14. SINGULAIR [Suspect]
     Active Substance: MONTELUKAST SODIUM
     Indication: PRODUCT USED FOR UNKNOWN INDICATION
     Dosage: 10 MILLIGRAM
  15. PAROXETINE HYDROCHLORIDE. [Concomitant]
     Active Substance: PAROXETINE HYDROCHLORIDE
     Indication: PRODUCT USED FOR UNKNOWN INDICATION
  16. ATROVENT [Suspect]
     Active Substance: IPRATROPIUM BROMIDE
     Indication: PRODUCT USED FOR UNKNOWN INDICATION
  17. SYMBICORT [Suspect]
     Active Substance: BUDESONIDE\FORMOTEROL FUMARATE DIHYDRATE
     Indication: PRODUCT USED FOR UNKNOWN INDICATION
     Dosage: 4 DF, FREQUENCY UNKNOWN UNKNOWN
     Route: 055
  18. THEOPHYLLINE [Suspect]
     Active Substance: THEOPHYLLINE ANHYDROUS
     Dosage: 600 MILLIGRAM
  19. VALSARTAN/HYDROCHLOROTHIAZIDE [Concomitant]
     Active Substance: HYDROCHLOROTHIAZIDE\VALSARTAN
     Indication: PRODUCT USED FOR UNKNOWN INDICATION
  20. ERGOCALCIFEROL. [Concomitant]
     Active Substance: ERGOCALCIFEROL
     Indication: PRODUCT USED FOR UNKNOWN INDICATION
     Dosage: 2000 DOSAGE FORM/DAY PO
     Route: 048
  21. BUPROPION HYDROCHLORIDE. [Concomitant]
     Active Substance: BUPROPION HYDROCHLORIDE
     Indication: DEPRESSION
     Dosage: 300 MILLIGRAM/DAY PO
     Route: 048

REACTIONS (28)
  - Affective disorder [Recovering/Resolving]
  - Ankle fracture [Recovering/Resolving]
  - Granuloma [Recovering/Resolving]
  - Weight increased [Recovering/Resolving]
  - Maternal exposure during pregnancy [Recovering/Resolving]
  - Bronchial haemorrhage [Recovering/Resolving]
  - Hypersensitivity [Recovering/Resolving]
  - Asthma [Recovering/Resolving]
  - Oxygen saturation decreased [Recovering/Resolving]
  - Rhinitis [Recovering/Resolving]
  - Wheezing [Recovering/Resolving]
  - Lower respiratory tract infection [Recovering/Resolving]
  - Obstructive airways disorder [Recovering/Resolving]
  - Sinus tachycardia [Recovering/Resolving]
  - Breath sounds abnormal [Recovering/Resolving]
  - Bronchial disorder [Recovering/Resolving]
  - Condition aggravated [Recovering/Resolving]
  - Respiratory disorder [Recovering/Resolving]
  - Rhonchi [Recovering/Resolving]
  - Therapeutic product effect incomplete [Recovering/Resolving]
  - Endometrial ablation [Recovering/Resolving]
  - Nasal congestion [Recovering/Resolving]
  - Nasal turbinate hypertrophy [Recovering/Resolving]
  - Bronchial neoplasm [Recovering/Resolving]
  - Dyspnoea [Recovering/Resolving]
  - Herpes zoster [Recovering/Resolving]
  - Infection [Recovering/Resolving]
  - Sinusitis [Recovering/Resolving]
